FAERS Safety Report 21584931 (Version 21)
Quarter: 2025Q3

REPORT INFORMATION
  Report Type: Report from Study
  Country: CA (occurrence: CA)
  Receive Date: 20221111
  Receipt Date: 20250918
  Transmission Date: 20251021
  Serious: Yes (Death, Life-Threatening, Hospitalization, Disabling, Other)
  Sender: ORGANON
  Company Number: CA-ROCHE-2656511

PATIENT
  Age: 44 Year
  Sex: Female
  Weight: 97 kg

DRUGS (502)
  1. FOSAMAX [Suspect]
     Active Substance: ALENDRONATE SODIUM
     Indication: Rheumatoid arthritis
     Route: 048
  2. FOSAMAX [Suspect]
     Active Substance: ALENDRONATE SODIUM
     Indication: Product used for unknown indication
     Route: 048
  3. FOSAMAX [Suspect]
     Active Substance: ALENDRONATE SODIUM
     Route: 065
  4. FOSAMAX [Suspect]
     Active Substance: ALENDRONATE SODIUM
     Route: 065
  5. FOSAMAX [Suspect]
     Active Substance: ALENDRONATE SODIUM
     Route: 065
  6. FOSAMAX [Suspect]
     Active Substance: ALENDRONATE SODIUM
     Route: 048
  7. FOSAMAX [Suspect]
     Active Substance: ALENDRONATE SODIUM
     Route: 016
  8. MARVELON [Suspect]
     Active Substance: DESOGESTREL\ETHINYL ESTRADIOL
     Indication: Product used for unknown indication
     Route: 065
  9. ACETAMINOPHEN [Suspect]
     Active Substance: ACETAMINOPHEN
     Indication: Product used for unknown indication
     Route: 065
  10. ACETAMINOPHEN [Suspect]
     Active Substance: ACETAMINOPHEN
     Indication: Pyrexia
     Route: 065
  11. ACETAMINOPHEN [Suspect]
     Active Substance: ACETAMINOPHEN
     Indication: Rheumatoid arthritis
     Route: 065
  12. ACETAMINOPHEN [Suspect]
     Active Substance: ACETAMINOPHEN
     Indication: Pain
     Route: 065
  13. PREDNISONE [Suspect]
     Active Substance: PREDNISONE
     Indication: Product used for unknown indication
     Route: 048
  14. PREDNISONE [Suspect]
     Active Substance: PREDNISONE
     Indication: Rheumatoid arthritis
     Route: 065
  15. PREDNISONE [Suspect]
     Active Substance: PREDNISONE
     Indication: Systemic lupus erythematosus
     Route: 048
  16. PREDNISONE [Suspect]
     Active Substance: PREDNISONE
     Indication: Synovitis
     Route: 048
  17. PREDNISONE [Suspect]
     Active Substance: PREDNISONE
     Indication: Rheumatoid arthritis
     Route: 048
  18. PREDNISONE [Suspect]
     Active Substance: PREDNISONE
     Indication: Psoriatic arthropathy
     Route: 065
  19. PREDNISONE [Suspect]
     Active Substance: PREDNISONE
     Indication: Pemphigus
     Route: 065
  20. PREDNISONE [Suspect]
     Active Substance: PREDNISONE
     Indication: Inflammation
     Route: 048
  21. PREDNISONE [Suspect]
     Active Substance: PREDNISONE
     Indication: Bursitis
     Route: 065
  22. ARAVA [Suspect]
     Active Substance: LEFLUNOMIDE
     Indication: Rheumatoid arthritis
     Route: 048
  23. ARAVA [Suspect]
     Active Substance: LEFLUNOMIDE
     Indication: Wound treatment
     Dosage: 20 MILLIGRAM, 1 EVERY 1 DAYS(QD)
     Route: 048
  24. ARAVA [Suspect]
     Active Substance: LEFLUNOMIDE
     Indication: Product used for unknown indication
     Dosage: 10 MILLIGRAM, 1 EVERY 1 DAYS
     Route: 048
  25. ARAVA [Suspect]
     Active Substance: LEFLUNOMIDE
     Route: 065
  26. ARAVA [Suspect]
     Active Substance: LEFLUNOMIDE
     Route: 048
  27. CHLORHEXIDINE [Suspect]
     Active Substance: CHLORHEXIDINE
     Indication: Product used for unknown indication
     Route: 048
  28. CHLORHEXIDINE [Suspect]
     Active Substance: CHLORHEXIDINE
     Indication: Rheumatoid arthritis
     Route: 061
  29. CHLORHEXIDINE [Suspect]
     Active Substance: CHLORHEXIDINE
     Route: 002
  30. CHLORHEXIDINE [Suspect]
     Active Substance: CHLORHEXIDINE
     Route: 065
  31. CHLORHEXIDINE GLUCONATE [Suspect]
     Active Substance: CHLORHEXIDINE GLUCONATE
     Indication: Product used for unknown indication
     Route: 061
  32. CHLORHEXIDINE GLUCONATE [Suspect]
     Active Substance: CHLORHEXIDINE GLUCONATE
     Route: 048
  33. CHLORHEXIDINE GLUCONATE [Suspect]
     Active Substance: CHLORHEXIDINE GLUCONATE
     Route: 002
  34. CHLORHEXIDINE GLUCONATE [Suspect]
     Active Substance: CHLORHEXIDINE GLUCONATE
     Route: 048
  35. CHLORHEXIDINE GLUCONATE [Suspect]
     Active Substance: CHLORHEXIDINE GLUCONATE
     Route: 048
  36. CHLORHEXIDINE GLUCONATE [Suspect]
     Active Substance: CHLORHEXIDINE GLUCONATE
     Route: 065
  37. CHLORHEXIDINE GLUCONATE [Suspect]
     Active Substance: CHLORHEXIDINE GLUCONATE
     Route: 065
  38. CHLORHEXIDINE GLUCONATE\CHLOROBUTANOL [Suspect]
     Active Substance: CHLORHEXIDINE GLUCONATE\CHLOROBUTANOL
     Indication: Product used for unknown indication
     Route: 048
  39. CHLORHEXIDINE GLUCONATE\CHLOROBUTANOL [Suspect]
     Active Substance: CHLORHEXIDINE GLUCONATE\CHLOROBUTANOL
     Route: 061
  40. CHLORAPREP [Suspect]
     Active Substance: CHLORHEXIDINE GLUCONATE\ISOPROPYL ALCOHOL
     Indication: Product used for unknown indication
     Route: 061
  41. CHLORAPREP [Suspect]
     Active Substance: CHLORHEXIDINE GLUCONATE\ISOPROPYL ALCOHOL
     Indication: Rheumatoid arthritis
     Route: 048
  42. CHLORAPREP [Suspect]
     Active Substance: CHLORHEXIDINE GLUCONATE\ISOPROPYL ALCOHOL
     Route: 065
  43. CIMZIA [Suspect]
     Active Substance: CERTOLIZUMAB PEGOL
     Indication: Rheumatoid arthritis
     Route: 058
  44. CIMZIA [Suspect]
     Active Substance: CERTOLIZUMAB PEGOL
     Indication: Product used for unknown indication
     Route: 058
  45. CIMZIA [Suspect]
     Active Substance: CERTOLIZUMAB PEGOL
     Indication: Psoriasis
     Route: 058
  46. CIMZIA [Suspect]
     Active Substance: CERTOLIZUMAB PEGOL
     Indication: Psoriatic arthropathy
     Route: 042
  47. CIMZIA [Suspect]
     Active Substance: CERTOLIZUMAB PEGOL
     Route: 058
  48. CIMZIA [Suspect]
     Active Substance: CERTOLIZUMAB PEGOL
     Route: 065
  49. CIMZIA [Suspect]
     Active Substance: CERTOLIZUMAB PEGOL
     Dosage: 1 DOSAGE FORM, 1 EVERY 1 WEEKS
     Route: 058
  50. CIMZIA [Suspect]
     Active Substance: CERTOLIZUMAB PEGOL
     Route: 058
  51. CIMZIA [Suspect]
     Active Substance: CERTOLIZUMAB PEGOL
     Route: 065
  52. HUMIRA [Suspect]
     Active Substance: ADALIMUMAB
     Indication: Rheumatoid arthritis
     Route: 058
  53. HUMIRA [Suspect]
     Active Substance: ADALIMUMAB
     Indication: Psoriatic arthropathy
     Route: 058
  54. HUMIRA [Suspect]
     Active Substance: ADALIMUMAB
     Route: 058
  55. HUMIRA [Suspect]
     Active Substance: ADALIMUMAB
     Route: 058
  56. HUMIRA [Suspect]
     Active Substance: ADALIMUMAB
     Route: 058
  57. HUMIRA [Suspect]
     Active Substance: ADALIMUMAB
     Route: 065
  58. ISOPROPYL ALCOHOL [Suspect]
     Active Substance: ISOPROPYL ALCOHOL
     Indication: Product used for unknown indication
     Route: 061
  59. OXYCODONE [Suspect]
     Active Substance: OXYCODONE
     Indication: Product used for unknown indication
     Route: 065
  60. ACETAMINOPHEN\OXYCODONE HYDROCHLORIDE [Suspect]
     Active Substance: ACETAMINOPHEN\OXYCODONE HYDROCHLORIDE
     Indication: Product used for unknown indication
     Route: 065
  61. ACETAMINOPHEN\OXYCODONE HYDROCHLORIDE [Suspect]
     Active Substance: ACETAMINOPHEN\OXYCODONE HYDROCHLORIDE
     Indication: Product used for unknown indication
     Route: 065
  62. OXYCODONE TEREPHTHALATE [Suspect]
     Active Substance: OXYCODONE TEREPHTHALATE
     Indication: Product used for unknown indication
     Route: 065
  63. OXYCODONE TEREPHTHALATE [Suspect]
     Active Substance: OXYCODONE TEREPHTHALATE
     Route: 016
  64. PERIOGARD [Suspect]
     Active Substance: CHLORHEXIDINE GLUCONATE
     Indication: Product used for unknown indication
     Route: 002
  65. PERIOGARD [Suspect]
     Active Substance: CHLORHEXIDINE GLUCONATE
     Route: 065
  66. PREDNISONE [Suspect]
     Active Substance: PREDNISONE
     Indication: Product used for unknown indication
     Route: 065
  67. PREDNISONE [Suspect]
     Active Substance: PREDNISONE
     Indication: Rheumatoid arthritis
     Route: 065
  68. PHTHALYLSULFATHIAZOLE [Suspect]
     Active Substance: PHTHALYLSULFATHIAZOLE
     Indication: Rheumatoid arthritis
     Dosage: 2000 MILLIGRAM, QD (1 EVERY 1 DAYS)
     Route: 048
  69. PHTHALYLSULFATHIAZOLE [Suspect]
     Active Substance: PHTHALYLSULFATHIAZOLE
     Route: 048
  70. PHTHALYLSULFATHIAZOLE [Suspect]
     Active Substance: PHTHALYLSULFATHIAZOLE
     Route: 048
  71. PHTHALYLSULFATHIAZOLE [Suspect]
     Active Substance: PHTHALYLSULFATHIAZOLE
     Route: 065
  72. PHTHALYLSULFATHIAZOLE [Suspect]
     Active Substance: PHTHALYLSULFATHIAZOLE
     Dosage: UNK, QD
     Route: 048
  73. PHTHALYLSULFATHIAZOLE [Suspect]
     Active Substance: PHTHALYLSULFATHIAZOLE
     Dosage: 1000 MILLIGRAM, QD
     Route: 065
  74. PHTHALYLSULFATHIAZOLE [Suspect]
     Active Substance: PHTHALYLSULFATHIAZOLE
     Route: 016
  75. PHTHALYLSULFATHIAZOLE [Suspect]
     Active Substance: PHTHALYLSULFATHIAZOLE
     Route: 065
  76. PHTHALYLSULFATHIAZOLE [Suspect]
     Active Substance: PHTHALYLSULFATHIAZOLE
     Route: 048
  77. PHTHALYLSULFATHIAZOLE [Suspect]
     Active Substance: PHTHALYLSULFATHIAZOLE
     Dosage: 1000 MILLIGRAM, BID
     Route: 048
  78. PHTHALYLSULFATHIAZOLE [Suspect]
     Active Substance: PHTHALYLSULFATHIAZOLE
     Route: 042
  79. CETIRIZINE HYDROCHLORIDE\PSEUDOEPHEDRINE HYDROCHLORIDE [Suspect]
     Active Substance: CETIRIZINE HYDROCHLORIDE\PSEUDOEPHEDRINE HYDROCHLORIDE
     Indication: Rheumatoid arthritis
     Route: 065
  80. CETIRIZINE HYDROCHLORIDE\PSEUDOEPHEDRINE HYDROCHLORIDE [Suspect]
     Active Substance: CETIRIZINE HYDROCHLORIDE\PSEUDOEPHEDRINE HYDROCHLORIDE
     Indication: Off label use
     Route: 005
  81. CETIRIZINE HYDROCHLORIDE\PSEUDOEPHEDRINE HYDROCHLORIDE [Suspect]
     Active Substance: CETIRIZINE HYDROCHLORIDE\PSEUDOEPHEDRINE HYDROCHLORIDE
     Indication: Urticaria
     Route: 048
  82. ACETAMINOPHEN [Suspect]
     Active Substance: ACETAMINOPHEN
     Indication: Product used for unknown indication
     Route: 065
  83. RITUXIMAB [Suspect]
     Active Substance: RITUXIMAB
     Indication: Rheumatoid arthritis
     Route: 042
  84. RITUXIMAB [Suspect]
     Active Substance: RITUXIMAB
     Indication: Product used for unknown indication
     Route: 058
  85. RITUXIMAB [Suspect]
     Active Substance: RITUXIMAB
     Route: 016
  86. RITUXIMAB [Suspect]
     Active Substance: RITUXIMAB
     Route: 065
  87. RITUXIMAB [Suspect]
     Active Substance: RITUXIMAB
     Route: 041
  88. RITUXIMAB [Suspect]
     Active Substance: RITUXIMAB
     Route: 065
  89. RITUXIMAB [Suspect]
     Active Substance: RITUXIMAB
     Route: 058
  90. RITUXIMAB [Suspect]
     Active Substance: RITUXIMAB
     Route: 042
  91. RITUXIMAB [Suspect]
     Active Substance: RITUXIMAB
     Indication: Rheumatoid arthritis
     Route: 058
  92. RITUXIMAB [Suspect]
     Active Substance: RITUXIMAB
     Indication: Product used for unknown indication
     Route: 041
  93. RITUXAN [Suspect]
     Active Substance: RITUXIMAB
     Indication: Rheumatoid arthritis
     Route: 042
  94. SIMPONI [Suspect]
     Active Substance: GOLIMUMAB
     Indication: Rheumatoid arthritis
     Route: 058
  95. SIMPONI [Suspect]
     Active Substance: GOLIMUMAB
     Indication: Psoriatic arthropathy
     Route: 042
  96. SIMPONI [Suspect]
     Active Substance: GOLIMUMAB
     Route: 058
  97. SIMPONI [Suspect]
     Active Substance: GOLIMUMAB
     Route: 065
  98. SIMPONI [Suspect]
     Active Substance: GOLIMUMAB
     Route: 065
  99. SIMPONI [Suspect]
     Active Substance: GOLIMUMAB
     Route: 058
  100. SIMPONI [Suspect]
     Active Substance: GOLIMUMAB
     Route: 042
  101. SIMPONI [Suspect]
     Active Substance: GOLIMUMAB
     Route: 052
  102. SULFAMETHOXAZOLE [Suspect]
     Active Substance: SULFAMETHOXAZOLE
     Indication: Product used for unknown indication
     Route: 065
  103. SULFAMETHOXAZOLE [Suspect]
     Active Substance: SULFAMETHOXAZOLE
     Indication: Rheumatoid arthritis
     Route: 067
  104. SULFAMETHOXAZOLE\TRIMETHOPRIM [Suspect]
     Active Substance: SULFAMETHOXAZOLE\TRIMETHOPRIM
     Indication: Product used for unknown indication
     Route: 065
  105. SULFAMETHOXAZOLE\TRIMETHOPRIM [Suspect]
     Active Substance: SULFAMETHOXAZOLE\TRIMETHOPRIM
     Route: 067
  106. SULFAMETHOXAZOLE\TRIMETHOPRIM [Suspect]
     Active Substance: SULFAMETHOXAZOLE\TRIMETHOPRIM
     Route: 065
  107. TOPICORT [Suspect]
     Active Substance: DESOXIMETASONE
     Indication: Rheumatoid arthritis
     Route: 003
  108. TOPICORT [Suspect]
     Active Substance: DESOXIMETASONE
     Route: 058
  109. TOPICORT [Suspect]
     Active Substance: DESOXIMETASONE
     Route: 048
  110. TOPICORT [Suspect]
     Active Substance: DESOXIMETASONE
     Route: 048
  111. TOPICORT [Suspect]
     Active Substance: DESOXIMETASONE
     Route: 048
  112. TOPICORT [Suspect]
     Active Substance: DESOXIMETASONE
     Route: 065
  113. TOPICORT [Suspect]
     Active Substance: DESOXIMETASONE
     Route: 065
  114. TOPICORT [Suspect]
     Active Substance: DESOXIMETASONE
     Route: 003
  115. TRIAMCINOLONE ACETONIDE [Suspect]
     Active Substance: TRIAMCINOLONE ACETONIDE
     Indication: Product used for unknown indication
     Route: 003
  116. HYDROCORTISONE ACETATE [Suspect]
     Active Substance: HYDROCORTISONE ACETATE
     Indication: Product used for unknown indication
     Route: 065
  117. HYDROCORTISONE ACETATE [Suspect]
     Active Substance: HYDROCORTISONE ACETATE
     Indication: Rheumatoid arthritis
     Route: 065
  118. HYDROCORTISONE ACETATE [Suspect]
     Active Substance: HYDROCORTISONE ACETATE
     Route: 058
  119. KEVZARA [Suspect]
     Active Substance: SARILUMAB
     Indication: Rheumatoid arthritis
     Route: 065
  120. ADALIMUMAB [Suspect]
     Active Substance: ADALIMUMAB
     Indication: Rheumatoid arthritis
     Route: 058
  121. ADALIMUMAB [Suspect]
     Active Substance: ADALIMUMAB
     Indication: Psoriatic arthropathy
     Route: 048
  122. ADALIMUMAB [Suspect]
     Active Substance: ADALIMUMAB
     Indication: Product used for unknown indication
     Route: 058
  123. ADALIMUMAB [Suspect]
     Active Substance: ADALIMUMAB
     Indication: Rheumatoid arthritis
     Route: 058
  124. ADALIMUMAB [Suspect]
     Active Substance: ADALIMUMAB
     Indication: Psoriatic arthropathy
     Route: 058
  125. ADALIMUMAB [Suspect]
     Active Substance: ADALIMUMAB
     Indication: Product used for unknown indication
     Route: 048
  126. ADALIMUMAB [Suspect]
     Active Substance: ADALIMUMAB
     Route: 065
  127. ADALIMUMAB [Suspect]
     Active Substance: ADALIMUMAB
     Route: 065
  128. ADALIMUMAB [Suspect]
     Active Substance: ADALIMUMAB
     Route: 042
  129. ACETAMINOPHEN [Suspect]
     Active Substance: ACETAMINOPHEN
     Indication: Product used for unknown indication
     Route: 065
  130. CALCIUM CARBONATE [Suspect]
     Active Substance: CALCIUM CARBONATE
     Indication: Product used for unknown indication
     Route: 016
  131. CALCIUM GLUCONATE [Suspect]
     Active Substance: CALCIUM GLUCONATE
     Indication: Product used for unknown indication
     Route: 065
  132. INFLIXIMAB [Suspect]
     Active Substance: INFLIXIMAB
     Indication: Product used for unknown indication
     Route: 065
  133. INFLIXIMAB [Suspect]
     Active Substance: INFLIXIMAB
     Indication: Rheumatoid arthritis
     Route: 065
  134. INFLIXIMAB [Suspect]
     Active Substance: INFLIXIMAB
     Indication: Psoriatic arthropathy
     Route: 042
  135. INFLIXIMAB [Suspect]
     Active Substance: INFLIXIMAB
     Route: 042
  136. INFLIXIMAB [Suspect]
     Active Substance: INFLIXIMAB
     Route: 065
  137. TOFACITINIB CITRATE [Suspect]
     Active Substance: TOFACITINIB CITRATE
     Indication: Rheumatoid arthritis
     Dosage: 10 MILLIGRAM, 1 EVERY 1 DAYS(QD)
     Route: 065
  138. TOFACITINIB CITRATE [Suspect]
     Active Substance: TOFACITINIB CITRATE
     Indication: Psoriatic arthropathy
     Route: 048
  139. TOFACITINIB CITRATE [Suspect]
     Active Substance: TOFACITINIB CITRATE
     Dosage: 10 MILLIGRAM, QW
     Route: 065
  140. TOFACITINIB CITRATE [Suspect]
     Active Substance: TOFACITINIB CITRATE
     Dosage: 5 MILLIGRAM, QW
     Route: 048
  141. TOFACITINIB CITRATE [Suspect]
     Active Substance: TOFACITINIB CITRATE
     Route: 058
  142. TOFACITINIB CITRATE [Suspect]
     Active Substance: TOFACITINIB CITRATE
     Dosage: 5 MILLIGRAM, 1 EVERY .5 DAYS
     Route: 048
  143. AMMONIUM CHLORIDE\DIPHENHYDRAMINE HYDROCHLORIDE\MENTHOL\SODIUM CITRATE [Suspect]
     Active Substance: AMMONIUM CHLORIDE\DIPHENHYDRAMINE HYDROCHLORIDE\MENTHOL\SODIUM CITRATE
     Indication: Product used for unknown indication
     Route: 065
  144. ASACOL [Suspect]
     Active Substance: MESALAMINE
     Indication: Crohn^s disease
     Route: 065
  145. AZATHIOPRINE SODIUM [Suspect]
     Active Substance: AZATHIOPRINE SODIUM
     Indication: Rheumatoid arthritis
     Route: 065
  146. OTEZLA [Suspect]
     Active Substance: APREMILAST
     Indication: Product used for unknown indication
     Route: 048
  147. OTEZLA [Suspect]
     Active Substance: APREMILAST
     Dosage: 3 MILLIGRAM, BID
     Route: 048
  148. OTEZLA [Suspect]
     Active Substance: APREMILAST
     Dosage: 6 MILLIGRAM, BID
     Route: 048
  149. OTEZLA [Suspect]
     Active Substance: APREMILAST
     Route: 065
  150. OTEZLA [Suspect]
     Active Substance: APREMILAST
     Route: 065
  151. OTEZLA [Suspect]
     Active Substance: APREMILAST
     Route: 042
  152. OTEZLA [Suspect]
     Active Substance: APREMILAST
     Route: 065
  153. OTEZLA [Suspect]
     Active Substance: APREMILAST
     Route: 065
  154. OTEZLA [Suspect]
     Active Substance: APREMILAST
     Route: 065
  155. OTEZLA [Suspect]
     Active Substance: APREMILAST
     Route: 065
  156. OTEZLA [Suspect]
     Active Substance: APREMILAST
     Route: 048
  157. ACTEMRA [Suspect]
     Active Substance: TOCILIZUMAB
     Indication: Product used for unknown indication
     Dosage: 752.8 MILLIGRAM, QW
     Route: 042
  158. ACTEMRA [Suspect]
     Active Substance: TOCILIZUMAB
     Indication: Rheumatoid arthritis
  159. CELEBREX [Suspect]
     Active Substance: CELECOXIB
     Indication: Product used for unknown indication
     Dosage: 2 DOSAGE FORM, 1 EVERY 1 DAYS
     Route: 048
  160. CELEBREX [Suspect]
     Active Substance: CELECOXIB
     Indication: Rheumatoid arthritis
     Route: 048
  161. CELEBREX [Suspect]
     Active Substance: CELECOXIB
     Indication: Arthritis
     Dosage: 1 DOSAGE FORM, 1 EVERY 1 DAYS(QD)
     Route: 065
  162. CELEBREX [Suspect]
     Active Substance: CELECOXIB
     Route: 065
  163. CELEBREX [Suspect]
     Active Substance: CELECOXIB
     Dosage: 1 DOSAGE FORM, 1 EVERY 1 DAYS(QD)
     Route: 048
  164. CELEBREX [Suspect]
     Active Substance: CELECOXIB
     Dosage: 1 DOSAGE FORM, 1 EVERY 1 DAYS(QD)
     Route: 048
  165. CELECOXIB [Suspect]
     Active Substance: CELECOXIB
     Indication: Product used for unknown indication
     Dosage: 1 DOSAGE FORM, 1 EVERY 1 DAYS
     Route: 065
  166. CELECOXIB [Suspect]
     Active Substance: CELECOXIB
     Route: 065
  167. CERTOLIZUMAB PEGOL [Suspect]
     Active Substance: CERTOLIZUMAB PEGOL
     Indication: Product used for unknown indication
     Route: 065
  168. CERTOLIZUMAB PEGOL [Suspect]
     Active Substance: CERTOLIZUMAB PEGOL
     Indication: Rheumatoid arthritis
     Route: 058
  169. CERTOLIZUMAB PEGOL [Suspect]
     Active Substance: CERTOLIZUMAB PEGOL
     Route: 058
  170. CERTOLIZUMAB PEGOL [Suspect]
     Active Substance: CERTOLIZUMAB PEGOL
     Route: 058
  171. CERTOLIZUMAB PEGOL [Suspect]
     Active Substance: CERTOLIZUMAB PEGOL
     Route: 065
  172. CERTOLIZUMAB PEGOL [Suspect]
     Active Substance: CERTOLIZUMAB PEGOL
     Route: 058
  173. CERTOLIZUMAB PEGOL [Suspect]
     Active Substance: CERTOLIZUMAB PEGOL
     Route: 058
  174. CERTOLIZUMAB PEGOL [Suspect]
     Active Substance: CERTOLIZUMAB PEGOL
     Route: 065
  175. CERTOLIZUMAB PEGOL [Suspect]
     Active Substance: CERTOLIZUMAB PEGOL
     Dosage: 1 DOSAGE FORM, 1 EVERY 1 DAYS
     Route: 058
  176. CERTOLIZUMAB PEGOL [Suspect]
     Active Substance: CERTOLIZUMAB PEGOL
     Route: 058
  177. CERTOLIZUMAB PEGOL [Suspect]
     Active Substance: CERTOLIZUMAB PEGOL
     Route: 065
  178. CETIRIZINE HYDROCHLORIDE [Suspect]
     Active Substance: CETIRIZINE HYDROCHLORIDE
     Indication: Rheumatoid arthritis
     Dosage: 10 MILLIGRAM, 1 EVERY 1DAYS
     Route: 048
  179. CETIRIZINE HYDROCHLORIDE [Suspect]
     Active Substance: CETIRIZINE HYDROCHLORIDE
     Indication: Product used for unknown indication
     Route: 048
  180. CETIRIZINE HYDROCHLORIDE [Suspect]
     Active Substance: CETIRIZINE HYDROCHLORIDE
     Route: 065
  181. CETIRIZINE HYDROCHLORIDE [Suspect]
     Active Substance: CETIRIZINE HYDROCHLORIDE
     Route: 048
  182. CETIRIZINE HYDROCHLORIDE [Suspect]
     Active Substance: CETIRIZINE HYDROCHLORIDE
     Route: 065
  183. CETIRIZINE HYDROCHLORIDE [Suspect]
     Active Substance: CETIRIZINE HYDROCHLORIDE
     Route: 065
  184. CETIRIZINE HYDROCHLORIDE [Suspect]
     Active Substance: CETIRIZINE HYDROCHLORIDE
     Route: 042
  185. CETIRIZINE HYDROCHLORIDE [Suspect]
     Active Substance: CETIRIZINE HYDROCHLORIDE
     Route: 016
  186. CETIRIZINE HYDROCHLORIDE [Suspect]
     Active Substance: CETIRIZINE HYDROCHLORIDE
     Route: 065
  187. BUPIVACAINE HYDROCHLORIDE\CLONIDINE HYDROCHLORIDE\MORPHINE SULFATE [Suspect]
     Active Substance: BUPIVACAINE HYDROCHLORIDE\CLONIDINE HYDROCHLORIDE\MORPHINE SULFATE
     Indication: Rheumatoid arthritis
     Route: 065
  188. AMINOSALICYLATE CALCIUM [Suspect]
     Active Substance: AMINOSALICYLATE CALCIUM
     Indication: Product used for unknown indication
     Route: 065
  189. CORTISONE ACETATE [Suspect]
     Active Substance: CORTISONE ACETATE
     Indication: Rheumatoid arthritis
     Route: 061
  190. CORTISONE ACETATE [Suspect]
     Active Substance: CORTISONE ACETATE
     Route: 065
  191. CORTISONE ACETATE [Suspect]
     Active Substance: CORTISONE ACETATE
     Route: 061
  192. CORTISONE ACETATE [Suspect]
     Active Substance: CORTISONE ACETATE
     Route: 065
  193. CORTISONE ACETATE [Suspect]
     Active Substance: CORTISONE ACETATE
     Route: 048
  194. CORTISONE ACETATE [Suspect]
     Active Substance: CORTISONE ACETATE
     Route: 048
  195. CORTISONE ACETATE [Suspect]
     Active Substance: CORTISONE ACETATE
     Route: 048
  196. DESOXIMETASONE\FRAMYCETIN SULFATE\GRAMICIDIN [Suspect]
     Active Substance: DESOXIMETASONE\FRAMYCETIN SULFATE\GRAMICIDIN
     Indication: Rheumatoid arthritis
     Route: 061
  197. COSENTYX [Suspect]
     Active Substance: SECUKINUMAB
     Indication: Rheumatoid arthritis
     Route: 005
  198. COSENTYX [Suspect]
     Active Substance: SECUKINUMAB
     Indication: Psoriatic arthropathy
     Route: 042
  199. DIPHENHYDRAMINE [Suspect]
     Active Substance: DIPHENHYDRAMINE
     Indication: Product used for unknown indication
     Route: 065
  200. ERELZI [Suspect]
     Active Substance: ETANERCEPT-SZZS
     Indication: Rheumatoid arthritis
     Route: 065
  201. ERELZI [Suspect]
     Active Substance: ETANERCEPT-SZZS
     Indication: Product used for unknown indication
     Dosage: 50 MILLIGRAM, 1 EVERY 1 DAYS
     Route: 065
  202. ERELZI [Suspect]
     Active Substance: ETANERCEPT-SZZS
     Indication: Rheumatoid arthritis
     Dosage: 50 MILLIGRAM, 1 EVERY 1 WEEK
     Route: 058
  203. ERELZI [Suspect]
     Active Substance: ETANERCEPT-SZZS
     Indication: Product used for unknown indication
     Route: 058
  204. ERELZI [Suspect]
     Active Substance: ETANERCEPT-SZZS
     Route: 065
  205. ERELZI [Suspect]
     Active Substance: ETANERCEPT-SZZS
     Route: 065
  206. ERELZI [Suspect]
     Active Substance: ETANERCEPT-SZZS
     Dosage: 50 MILLIGRAM, 1 EVERY 1 WEEK
     Route: 065
  207. CALCIUM CITRATE [Suspect]
     Active Substance: CALCIUM CITRATE
     Indication: Product used for unknown indication
     Route: 065
  208. ACETAMINOPHEN [Suspect]
     Active Substance: ACETAMINOPHEN
     Indication: Rheumatoid arthritis
     Route: 065
  209. ACETAMINOPHEN AND CODEINE [Suspect]
     Active Substance: ACETAMINOPHEN\CODEINE PHOSPHATE
     Indication: Rheumatoid arthritis
     Route: 065
  210. ACETAMINOPHEN\OXYCODONE HYDROCHLORIDE [Suspect]
     Active Substance: ACETAMINOPHEN\OXYCODONE HYDROCHLORIDE
     Indication: Product used for unknown indication
     Route: 065
  211. ACETAMINOPHEN\OXYCODONE HYDROCHLORIDE [Suspect]
     Active Substance: ACETAMINOPHEN\OXYCODONE HYDROCHLORIDE
     Route: 065
  212. ACETAMINOPHEN\OXYCODONE HYDROCHLORIDE [Suspect]
     Active Substance: ACETAMINOPHEN\OXYCODONE HYDROCHLORIDE
     Route: 065
  213. ACETAMINOPHEN\OXYCODONE HYDROCHLORIDE [Suspect]
     Active Substance: ACETAMINOPHEN\OXYCODONE HYDROCHLORIDE
     Route: 065
  214. ACTEMRA [Suspect]
     Active Substance: TOCILIZUMAB
     Indication: Rheumatoid arthritis
     Route: 048
  215. ACTEMRA [Suspect]
     Active Substance: TOCILIZUMAB
     Indication: Product used for unknown indication
     Dosage: 728.8 MILLIGRAM, QM
     Route: 042
  216. ACTEMRA [Suspect]
     Active Substance: TOCILIZUMAB
     Dosage: 728.8 MILLIGRAM, QM
     Route: 042
  217. ACTEMRA [Suspect]
     Active Substance: TOCILIZUMAB
     Route: 042
  218. ACTEMRA [Suspect]
     Active Substance: TOCILIZUMAB
     Route: 058
  219. ACTEMRA [Suspect]
     Active Substance: TOCILIZUMAB
     Route: 042
  220. ACTEMRA [Suspect]
     Active Substance: TOCILIZUMAB
     Dosage: 752.8 MILLIGRAM, QW
     Route: 042
  221. ACTEMRA [Suspect]
     Active Substance: TOCILIZUMAB
     Route: 042
  222. ACTEMRA [Suspect]
     Active Substance: TOCILIZUMAB
     Route: 042
  223. ACTEMRA [Suspect]
     Active Substance: TOCILIZUMAB
     Route: 065
  224. ACTEMRA [Suspect]
     Active Substance: TOCILIZUMAB
     Route: 065
  225. ACTEMRA [Suspect]
     Active Substance: TOCILIZUMAB
     Route: 065
  226. ACTEMRA [Suspect]
     Active Substance: TOCILIZUMAB
     Route: 065
  227. ACTEMRA [Suspect]
     Active Substance: TOCILIZUMAB
     Route: 042
  228. ACTEMRA [Suspect]
     Active Substance: TOCILIZUMAB
     Route: 042
  229. ACTEMRA [Suspect]
     Active Substance: TOCILIZUMAB
     Route: 042
  230. ACTEMRA [Suspect]
     Active Substance: TOCILIZUMAB
     Route: 042
  231. ACTEMRA [Suspect]
     Active Substance: TOCILIZUMAB
     Route: 065
  232. ACTEMRA [Suspect]
     Active Substance: TOCILIZUMAB
     Route: 065
  233. ACTEMRA [Suspect]
     Active Substance: TOCILIZUMAB
     Indication: Rheumatoid arthritis
     Route: 042
  234. ACTEMRA [Suspect]
     Active Substance: TOCILIZUMAB
     Route: 042
  235. ACTEMRA [Suspect]
     Active Substance: TOCILIZUMAB
     Dosage: 752.8 MILLIGRAM, QW
     Route: 042
  236. ACTEMRA [Suspect]
     Active Substance: TOCILIZUMAB
     Route: 042
  237. ACTEMRA [Suspect]
     Active Substance: TOCILIZUMAB
     Route: 042
  238. ACTEMRA [Suspect]
     Active Substance: TOCILIZUMAB
     Route: 042
  239. ACTEMRA [Suspect]
     Active Substance: TOCILIZUMAB
     Route: 058
  240. ACTEMRA [Suspect]
     Active Substance: TOCILIZUMAB
     Route: 042
  241. ACTEMRA [Suspect]
     Active Substance: TOCILIZUMAB
     Route: 048
  242. ACTEMRA [Suspect]
     Active Substance: TOCILIZUMAB
     Route: 042
  243. ACTEMRA [Suspect]
     Active Substance: TOCILIZUMAB
     Route: 042
  244. ACTEMRA [Suspect]
     Active Substance: TOCILIZUMAB
     Route: 058
  245. ACTEMRA [Suspect]
     Active Substance: TOCILIZUMAB
     Route: 042
  246. ACTEMRA [Suspect]
     Active Substance: TOCILIZUMAB
     Route: 042
  247. ACTEMRA [Suspect]
     Active Substance: TOCILIZUMAB
     Route: 042
  248. ACTEMRA [Suspect]
     Active Substance: TOCILIZUMAB
     Route: 065
  249. ACTEMRA [Suspect]
     Active Substance: TOCILIZUMAB
     Route: 042
  250. ACTEMRA [Suspect]
     Active Substance: TOCILIZUMAB
     Route: 058
  251. ACTEMRA [Suspect]
     Active Substance: TOCILIZUMAB
     Route: 042
  252. ACTEMRA [Suspect]
     Active Substance: TOCILIZUMAB
     Dosage: 3011.2 MILLIGRAM, 1 EVERY 1 WEEKS
     Route: 058
  253. ACTEMRA [Suspect]
     Active Substance: TOCILIZUMAB
     Route: 065
  254. ACTEMRA [Suspect]
     Active Substance: TOCILIZUMAB
     Dosage: 2912.0 MILLIGRAM, 1 EVERY 1 WEEKS
     Route: 058
  255. ACTEMRA [Suspect]
     Active Substance: TOCILIZUMAB
     Route: 065
  256. ACTEMRA [Suspect]
     Active Substance: TOCILIZUMAB
     Dosage: 1 DOSAGE FORM, 1 EVERY 1 WEEKS
     Route: 058
  257. ACTEMRA [Suspect]
     Active Substance: TOCILIZUMAB
     Dosage: 1 DOSAGE FORM, 1 EVERY 1 WEEKS
     Route: 042
  258. ACTEMRA [Suspect]
     Active Substance: TOCILIZUMAB
     Route: 042
  259. ACTEMRA [Suspect]
     Active Substance: TOCILIZUMAB
     Route: 042
  260. ACTEMRA [Suspect]
     Active Substance: TOCILIZUMAB
     Dosage: 752.0 MILLIGRAM, 1 EVERY 1 WEEKS
     Route: 042
  261. ACTEMRA [Suspect]
     Active Substance: TOCILIZUMAB
     Route: 065
  262. ACTEMRA [Suspect]
     Active Substance: TOCILIZUMAB
     Dosage: 2912.0 MILLIGRAM, 1 EVERY 1 WEEKS
     Route: 042
  263. AZULFIDINE [Suspect]
     Active Substance: SULFASALAZINE
     Indication: Product used for unknown indication
     Route: 065
  264. APREPITANT [Suspect]
     Active Substance: APREPITANT
     Indication: Product used for unknown indication
     Route: 042
  265. APREPITANT [Suspect]
     Active Substance: APREPITANT
     Route: 065
  266. APREPITANT [Suspect]
     Active Substance: APREPITANT
     Route: 065
  267. APREPITANT [Suspect]
     Active Substance: APREPITANT
     Route: 048
  268. CETIRIZINE [Suspect]
     Active Substance: CETIRIZINE HYDROCHLORIDE
     Indication: Rheumatoid arthritis
     Route: 065
  269. CETIRIZINE [Suspect]
     Active Substance: CETIRIZINE HYDROCHLORIDE
     Dosage: 10 MILLIGRAM, QD
     Route: 048
  270. CETIRIZINE [Suspect]
     Active Substance: CETIRIZINE HYDROCHLORIDE
     Route: 016
  271. CETIRIZINE [Suspect]
     Active Substance: CETIRIZINE HYDROCHLORIDE
     Route: 048
  272. CETIRIZINE [Suspect]
     Active Substance: CETIRIZINE HYDROCHLORIDE
     Route: 065
  273. CETIRIZINE [Suspect]
     Active Substance: CETIRIZINE HYDROCHLORIDE
     Route: 061
  274. CETIRIZINE [Suspect]
     Active Substance: CETIRIZINE HYDROCHLORIDE
     Route: 065
  275. CETIRIZINE [Suspect]
     Active Substance: CETIRIZINE HYDROCHLORIDE
     Route: 065
  276. CLIOQUINOL [Suspect]
     Active Substance: CLIOQUINOL
     Indication: Product used for unknown indication
     Route: 065
  277. CORTISONE ACETATE [Suspect]
     Active Substance: CORTISONE ACETATE
     Indication: Rheumatoid arthritis
     Route: 065
  278. CORTISONE ACETATE [Suspect]
     Active Substance: CORTISONE ACETATE
     Route: 058
  279. CORTISONE ACETATE [Suspect]
     Active Substance: CORTISONE ACETATE
     Route: 061
  280. CORTISONE ACETATE [Suspect]
     Active Substance: CORTISONE ACETATE
     Route: 065
  281. CORTISONE ACETATE [Suspect]
     Active Substance: CORTISONE ACETATE
     Route: 061
  282. CORTISONE ACETATE [Suspect]
     Active Substance: CORTISONE ACETATE
     Route: 048
  283. CORTISONE ACETATE [Suspect]
     Active Substance: CORTISONE ACETATE
     Route: 048
  284. EMEND [Suspect]
     Active Substance: APREPITANT
     Indication: Product used for unknown indication
     Route: 065
  285. EMEND [Suspect]
     Active Substance: APREPITANT
     Route: 048
  286. EMEND [Suspect]
     Active Substance: APREPITANT
     Route: 065
  287. EMEND [Suspect]
     Active Substance: APREPITANT
     Route: 042
  288. ENTYVIO [Suspect]
     Active Substance: VEDOLIZUMAB
     Indication: Product used for unknown indication
     Route: 042
  289. ENTYVIO [Suspect]
     Active Substance: VEDOLIZUMAB
     Route: 065
  290. HYDROCORTISONE [Suspect]
     Active Substance: HYDROCORTISONE
     Indication: Rheumatoid arthritis
     Route: 058
  291. HYDROCORTISONE [Suspect]
     Active Substance: HYDROCORTISONE
     Route: 048
  292. HYDROCORTISONE SODIUM SUCCINATE [Suspect]
     Active Substance: HYDROCORTISONE SODIUM SUCCINATE
     Indication: Rheumatoid arthritis
     Route: 048
  293. HYDROCORTISONE SODIUM SUCCINATE [Suspect]
     Active Substance: HYDROCORTISONE SODIUM SUCCINATE
     Route: 065
  294. HYDROCORTISONE SODIUM SUCCINATE [Suspect]
     Active Substance: HYDROCORTISONE SODIUM SUCCINATE
     Route: 058
  295. HYDROCORTISONE SODIUM SUCCINATE [Suspect]
     Active Substance: HYDROCORTISONE SODIUM SUCCINATE
     Route: 065
  296. HYDROCORTISONE SODIUM SUCCINATE [Suspect]
     Active Substance: HYDROCORTISONE SODIUM SUCCINATE
     Route: 048
  297. HYDROCORTISONE SODIUM SUCCINATE [Suspect]
     Active Substance: HYDROCORTISONE SODIUM SUCCINATE
     Route: 003
  298. HYDROCORTISONE SODIUM SUCCINATE [Suspect]
     Active Substance: HYDROCORTISONE SODIUM SUCCINATE
     Route: 065
  299. HYDROCORTISONE SODIUM SUCCINATE [Suspect]
     Active Substance: HYDROCORTISONE SODIUM SUCCINATE
     Route: 065
  300. HYDROCORTISONE SODIUM SUCCINATE [Suspect]
     Active Substance: HYDROCORTISONE SODIUM SUCCINATE
     Route: 061
  301. INDOMETHACIN [Suspect]
     Active Substance: INDOMETHACIN
     Indication: Product used for unknown indication
     Route: 065
  302. METHOTREXATE [Suspect]
     Active Substance: METHOTREXATE
     Indication: Rheumatoid arthritis
     Dosage: 25 MILLIGRAM, QD
     Route: 048
  303. METHOTREXATE [Suspect]
     Active Substance: METHOTREXATE
     Indication: Product used for unknown indication
     Route: 042
  304. METHOTREXATE [Suspect]
     Active Substance: METHOTREXATE
     Route: 058
  305. METHOTREXATE [Suspect]
     Active Substance: METHOTREXATE
     Dosage: 25 MILLIGRAM, QD
     Route: 048
  306. METHOTREXATE [Suspect]
     Active Substance: METHOTREXATE
     Route: 048
  307. METHOTREXATE [Suspect]
     Active Substance: METHOTREXATE
     Route: 058
  308. METHOTREXATE [Suspect]
     Active Substance: METHOTREXATE
     Dosage: 20 MILLIGRAM, QW
     Route: 048
  309. METHOTREXATE [Suspect]
     Active Substance: METHOTREXATE
     Dosage: 20 MILLIGRAM, QD
     Route: 048
  310. METHOTREXATE [Suspect]
     Active Substance: METHOTREXATE
     Route: 065
  311. METHOTREXATE [Suspect]
     Active Substance: METHOTREXATE
     Dosage: 25 MILLIGRAM, 1 EVERY 1 DAYS
     Route: 013
  312. METHOTREXATE [Suspect]
     Active Substance: METHOTREXATE
     Route: 058
  313. METHOTREXATE [Suspect]
     Active Substance: METHOTREXATE
     Dosage: 20 MILLIGRAM, 1 EVERY 1 WEEKS
     Route: 065
  314. METHOTREXATE [Suspect]
     Active Substance: METHOTREXATE
     Dosage: 25 MILLIGRAM, 1 EVERY 1 WEEKS
     Route: 048
  315. METHOTREXATE [Suspect]
     Active Substance: METHOTREXATE
     Dosage: 2 MILLIGRAM, 1 EVERY 1 WEEKS
     Route: 048
  316. METHOTREXATE [Suspect]
     Active Substance: METHOTREXATE
     Dosage: 2 MILLIGRAM, 1 EVERY 1 DAYS
     Route: 048
  317. METHOTREXATE [Suspect]
     Active Substance: METHOTREXATE
     Dosage: 15 MILLIGRAM, 1 EVERY 1 DAYS
     Route: 048
  318. METHOTREXATE [Suspect]
     Active Substance: METHOTREXATE
     Route: 048
  319. METHOTREXATE [Suspect]
     Active Substance: METHOTREXATE
     Route: 065
  320. METHOTREXATE [Suspect]
     Active Substance: METHOTREXATE
     Indication: Rheumatoid arthritis
     Route: 048
  321. METHOTREXATE [Suspect]
     Active Substance: METHOTREXATE
     Route: 048
  322. METHOTREXATE [Suspect]
     Active Substance: METHOTREXATE
     Route: 048
  323. METHOTREXATE [Suspect]
     Active Substance: METHOTREXATE
     Dosage: 25 MILLIGRAM, 1 EVERY 1 DAYS
     Route: 058
  324. METHOTREXATE [Suspect]
     Active Substance: METHOTREXATE
     Dosage: 20 MILLIGRAM, 1 EVERY 1 DAYS
     Route: 065
  325. METHOTREXATE [Suspect]
     Active Substance: METHOTREXATE
     Dosage: 500 MILLIGRAM, 2 EVERY 1 DAY
     Route: 065
  326. METHOTREXATE [Suspect]
     Active Substance: METHOTREXATE
     Route: 048
  327. METHOTREXATE [Suspect]
     Active Substance: METHOTREXATE
     Dosage: 25 MILLIGRAM, 1 EVERY 1 WEEKS
     Route: 058
  328. METHOTREXATE [Suspect]
     Active Substance: METHOTREXATE
     Route: 065
  329. METHOTREXATE [Suspect]
     Active Substance: METHOTREXATE
     Dosage: 25 MILLIGRAM, 1 EVERY 1 DAYS
     Route: 048
  330. METHOTREXATE [Suspect]
     Active Substance: METHOTREXATE
     Dosage: 20 MILLIGRAM, 1 EVERY 1 DAYS
     Route: 048
  331. METHOTREXATE [Suspect]
     Active Substance: METHOTREXATE
     Route: 013
  332. METHOTREXATE [Suspect]
     Active Substance: METHOTREXATE
     Route: 065
  333. METHOTREXATE [Suspect]
     Active Substance: METHOTREXATE
     Dosage: 25 MILLIGRAM, 1 EVERY 1 DAY
     Route: 013
  334. METHOTREXATE [Suspect]
     Active Substance: METHOTREXATE
     Route: 013
  335. METHOTREXATE [Suspect]
     Active Substance: METHOTREXATE
     Dosage: 2 GRAM, 1 EVERY 1 DAY
     Route: 048
  336. METHOTREXATE [Suspect]
     Active Substance: METHOTREXATE
     Route: 058
  337. METHOTREXATE [Suspect]
     Active Substance: METHOTREXATE
     Route: 058
  338. METHOTREXATE [Suspect]
     Active Substance: METHOTREXATE
     Route: 048
  339. METHOTREXATE [Suspect]
     Active Substance: METHOTREXATE
     Dosage: 20 MILLIGRAM, 1 EVERY 1 WEEKS
     Route: 048
  340. METHOTREXATE [Suspect]
     Active Substance: METHOTREXATE
     Route: 065
  341. METHOTREXATE [Suspect]
     Active Substance: METHOTREXATE
     Dosage: 500 MILLIGRAM, 1 EVERY 1 DAYS
     Route: 065
  342. METHOTREXATE [Suspect]
     Active Substance: METHOTREXATE
     Dosage: 25 MILLIGRAM, 1 EVERY 1 DAYS
     Route: 013
  343. METHOTREXATE [Suspect]
     Active Substance: METHOTREXATE
     Route: 048
  344. METHOTREXATE [Suspect]
     Active Substance: METHOTREXATE
     Dosage: 25 MILLIGRAM, 1 EVERY 1 DAYS
     Route: 013
  345. METHOTREXATE [Suspect]
     Active Substance: METHOTREXATE
     Route: 048
  346. METHOTREXATE [Suspect]
     Active Substance: METHOTREXATE
     Route: 048
  347. METHOTREXATE [Suspect]
     Active Substance: METHOTREXATE
     Route: 048
  348. METHOTREXATE [Suspect]
     Active Substance: METHOTREXATE
     Dosage: 2 DOSAGE FORM, 1 EVERY 1 DAYS
     Route: 048
  349. METHOTREXATE [Suspect]
     Active Substance: METHOTREXATE
     Route: 065
  350. METHOTREXATE [Suspect]
     Active Substance: METHOTREXATE
     Dosage: 20 MILLIGRAM, 1 EVERY 1 DAYS
     Route: 048
  351. METHOTREXATE [Suspect]
     Active Substance: METHOTREXATE
     Route: 048
  352. METHOTREXATE [Suspect]
     Active Substance: METHOTREXATE
     Dosage: 20 MILLIGRAM, 1 EVERY 1 WEEKS
     Route: 048
  353. METHOTREXATE [Suspect]
     Active Substance: METHOTREXATE
     Dosage: 25 MILLIGRAM, 1 EVERY 1 DAYS
     Route: 013
  354. METHOTREXATE [Suspect]
     Active Substance: METHOTREXATE
     Dosage: 25 MILLIGRAM, 1 EVERY 1 DAYS
     Route: 048
  355. METHOTREXATE [Suspect]
     Active Substance: METHOTREXATE
     Dosage: 15 MILLIGRAM, 1 EVERY 24 HOURS
     Route: 048
  356. METHOTREXATE [Suspect]
     Active Substance: METHOTREXATE
     Dosage: 25 MILLIGRAM, 1 EVERY 1 WEEKS
     Route: 048
  357. METHOTREXATE [Suspect]
     Active Substance: METHOTREXATE
     Dosage: 2 GRAM, 1 EVERY 24 HOURS
     Route: 048
  358. METHOTREXATE [Suspect]
     Active Substance: METHOTREXATE
     Dosage: 25 MILLIGRAM, 1 EVERY 1 WEEKS
     Route: 058
  359. METHOTREXATE [Suspect]
     Active Substance: METHOTREXATE
     Dosage: 20 MILLIGRAM, 1 EVERY 1 DAYS
     Route: 048
  360. METHOTREXATE [Suspect]
     Active Substance: METHOTREXATE
     Route: 048
  361. METHOTREXATE [Suspect]
     Active Substance: METHOTREXATE
     Dosage: 20 MILLIGRAM, 1 EVERY 1 WEEKS
     Route: 058
  362. METHOTREXATE [Suspect]
     Active Substance: METHOTREXATE
     Dosage: 20 MILLIGRAM, 1 EVERY 1 WEEKS
     Route: 013
  363. METHOTREXATE [Suspect]
     Active Substance: METHOTREXATE
     Route: 048
  364. METHOTREXATE [Suspect]
     Active Substance: METHOTREXATE
     Route: 048
  365. METHOTREXATE [Suspect]
     Active Substance: METHOTREXATE
     Dosage: 25 MILLIGRAM, 1 EVERY 1 DAYS
     Route: 048
  366. METHOTREXATE [Suspect]
     Active Substance: METHOTREXATE
     Dosage: 20 MILLIGRAM, 1 EVERY 1 DAYS
     Route: 065
  367. METHOTREXATE [Suspect]
     Active Substance: METHOTREXATE
     Dosage: 1000 MILLIGRAM, 1 EVERY 1 DAYS
     Route: 065
  368. METHOTREXATE [Suspect]
     Active Substance: METHOTREXATE
     Route: 048
  369. METHOTREXATE [Suspect]
     Active Substance: METHOTREXATE
     Route: 065
  370. PARA-AMINOSALICYLIC ACID [Suspect]
     Active Substance: AMINOSALICYLIC ACID
     Indication: Product used for unknown indication
     Route: 065
  371. TOCILIZUMAB [Suspect]
     Active Substance: TOCILIZUMAB
     Indication: Rheumatoid arthritis
     Route: 042
  372. TOCILIZUMAB [Suspect]
     Active Substance: TOCILIZUMAB
     Route: 065
  373. TOCILIZUMAB [Suspect]
     Active Substance: TOCILIZUMAB
     Route: 058
  374. VITAMIN D3 [Suspect]
     Active Substance: CHOLECALCIFEROL
     Indication: Product used for unknown indication
     Route: 065
  375. DICLOFENAC POTASSIUM [Suspect]
     Active Substance: DICLOFENAC POTASSIUM
     Indication: Product used for unknown indication
     Route: 065
  376. DICLOFENAC POTASSIUM [Suspect]
     Active Substance: DICLOFENAC POTASSIUM
     Route: 048
  377. DICLOFENAC POTASSIUM [Suspect]
     Active Substance: DICLOFENAC POTASSIUM
     Indication: Product used for unknown indication
     Route: 065
  378. DICLOFENAC SODIUM [Suspect]
     Active Substance: DICLOFENAC SODIUM
     Indication: Product used for unknown indication
     Route: 047
  379. DICLOFENAC SODIUM [Suspect]
     Active Substance: DICLOFENAC SODIUM
     Route: 058
  380. DICLOFENAC SODIUM [Suspect]
     Active Substance: DICLOFENAC SODIUM
     Route: 065
  381. DICLOFENAC SODIUM [Suspect]
     Active Substance: DICLOFENAC SODIUM
     Route: 065
  382. DICLOFENAC SODIUM [Suspect]
     Active Substance: DICLOFENAC SODIUM
     Route: 048
  383. DICLOFENAC SODIUM [Suspect]
     Active Substance: DICLOFENAC SODIUM
     Route: 048
  384. DICLOFENAC SODIUM [Suspect]
     Active Substance: DICLOFENAC SODIUM
     Indication: Product used for unknown indication
     Dosage: 50 MILLIGRAM, Q12H
     Route: 065
  385. DICLOFENAC SODIUM [Suspect]
     Active Substance: DICLOFENAC SODIUM
     Route: 065
  386. DICLOFENAC SODIUM [Suspect]
     Active Substance: DICLOFENAC SODIUM
     Route: 048
  387. DICLOFENAC SODIUM [Suspect]
     Active Substance: DICLOFENAC SODIUM
     Dosage: 50 MILLIGRAM, Q24H
     Route: 065
  388. DICLOFENAC SODIUM [Suspect]
     Active Substance: DICLOFENAC SODIUM
     Indication: Product used for unknown indication
     Route: 065
  389. DICLOFENAC SODIUM [Suspect]
     Active Substance: DICLOFENAC SODIUM
     Route: 065
  390. DICLOFENAC SODIUM [Suspect]
     Active Substance: DICLOFENAC SODIUM
     Route: 058
  391. DICLOFENAC SODIUM [Suspect]
     Active Substance: DICLOFENAC SODIUM
     Route: 047
  392. DICLOFENAC SODIUM [Suspect]
     Active Substance: DICLOFENAC SODIUM
     Route: 047
  393. DICLOFENAC SODIUM [Suspect]
     Active Substance: DICLOFENAC SODIUM
     Route: 065
  394. FOLIC ACID [Suspect]
     Active Substance: FOLIC ACID
     Indication: Rheumatoid arthritis
     Route: 065
  395. FOLIC ACID [Suspect]
     Active Substance: FOLIC ACID
     Indication: Product used for unknown indication
     Route: 065
  396. FOLIC ACID [Suspect]
     Active Substance: FOLIC ACID
     Route: 065
  397. FOLIC ACID [Suspect]
     Active Substance: FOLIC ACID
     Route: 065
  398. FOLIC ACID [Suspect]
     Active Substance: FOLIC ACID
     Route: 065
  399. FOLIC ACID [Suspect]
     Active Substance: FOLIC ACID
     Route: 048
  400. FOLIC ACID [Suspect]
     Active Substance: FOLIC ACID
     Dosage: 5 MILLIGRAM, 1 EVERY 1 DAYS
     Route: 065
  401. FOLIC ACID [Suspect]
     Active Substance: FOLIC ACID
     Route: 048
  402. FOLIC ACID [Suspect]
     Active Substance: FOLIC ACID
     Route: 065
  403. FOLIC ACID [Suspect]
     Active Substance: FOLIC ACID
     Route: 065
  404. FOLIC ACID [Suspect]
     Active Substance: FOLIC ACID
     Dosage: 1 MILLIGRAM, 1 EVERY 1 DAYS
     Route: 065
  405. FOLIC ACID [Suspect]
     Active Substance: FOLIC ACID
     Route: 048
  406. FOLIC ACID [Suspect]
     Active Substance: FOLIC ACID
     Route: 048
  407. FOLIC ACID [Suspect]
     Active Substance: FOLIC ACID
     Route: 058
  408. FOLIC ACID [Suspect]
     Active Substance: FOLIC ACID
     Dosage: 1 MILLIGRAM, 1 EVERY 1 DAYS
     Route: 065
  409. LEFLUNOMIDE [Suspect]
     Active Substance: LEFLUNOMIDE
     Indication: Rheumatoid arthritis
     Dosage: 20 MILLIGRAM, 1 EVERY 1 DAY
     Route: 048
  410. LEFLUNOMIDE [Suspect]
     Active Substance: LEFLUNOMIDE
     Indication: Product used for unknown indication
     Route: 065
  411. LEFLUNOMIDE [Suspect]
     Active Substance: LEFLUNOMIDE
     Route: 058
  412. LEFLUNOMIDE [Suspect]
     Active Substance: LEFLUNOMIDE
     Route: 048
  413. LEFLUNOMIDE [Suspect]
     Active Substance: LEFLUNOMIDE
     Dosage: 1 DOSAGE FORM, QD
     Route: 065
  414. LEFLUNOMIDE [Suspect]
     Active Substance: LEFLUNOMIDE
     Indication: Rheumatoid arthritis
     Route: 048
  415. LEFLUNOMIDE [Suspect]
     Active Substance: LEFLUNOMIDE
     Indication: Product used for unknown indication
     Route: 048
  416. MYCOPHENOLATE MOFETIL [Suspect]
     Active Substance: MYCOPHENOLATE MOFETIL
     Indication: Product used for unknown indication
     Route: 065
  417. OXYCODONE HYDROCHLORIDE [Suspect]
     Active Substance: OXYCODONE HYDROCHLORIDE
     Indication: Product used for unknown indication
     Route: 065
  418. OXYCODONE HYDROCHLORIDE [Suspect]
     Active Substance: OXYCODONE HYDROCHLORIDE
     Route: 065
  419. OXYCODONE HYDROCHLORIDE [Suspect]
     Active Substance: OXYCODONE HYDROCHLORIDE
     Route: 065
  420. OXYCODONE HYDROCHLORIDE [Suspect]
     Active Substance: OXYCODONE HYDROCHLORIDE
     Route: 065
  421. PANTOPRAZOLE [Suspect]
     Active Substance: PANTOPRAZOLE
     Indication: Product used for unknown indication
     Route: 065
  422. PREGABALIN [Suspect]
     Active Substance: PREGABALIN
     Indication: Product used for unknown indication
     Route: 065
  423. SECUKINUMAB [Suspect]
     Active Substance: SECUKINUMAB
     Indication: Rheumatoid arthritis
     Route: 065
  424. SECUKINUMAB [Suspect]
     Active Substance: SECUKINUMAB
     Indication: Psoriatic arthropathy
  425. FOLIC ACID [Suspect]
     Active Substance: FOLIC ACID
     Indication: Rheumatoid arthritis
     Route: 065
  426. FOLIC ACID [Suspect]
     Active Substance: FOLIC ACID
     Route: 065
  427. FOLIC ACID [Suspect]
     Active Substance: FOLIC ACID
     Route: 048
  428. FOLIC ACID [Suspect]
     Active Substance: FOLIC ACID
     Route: 048
  429. FOLIC ACID [Suspect]
     Active Substance: FOLIC ACID
     Route: 048
  430. FOLIC ACID [Suspect]
     Active Substance: FOLIC ACID
     Route: 048
  431. FOLIC ACID [Suspect]
     Active Substance: FOLIC ACID
     Route: 065
  432. FOLIC ACID [Suspect]
     Active Substance: FOLIC ACID
     Route: 065
  433. FOLIC ACID [Suspect]
     Active Substance: FOLIC ACID
     Route: 048
  434. FOLIC ACID [Suspect]
     Active Substance: FOLIC ACID
     Route: 048
  435. FOLIC ACID [Suspect]
     Active Substance: FOLIC ACID
     Dosage: 1 MILLIGRAM, 1 EVERY 1 WEEKS
     Route: 065
  436. FOLIC ACID [Suspect]
     Active Substance: FOLIC ACID
     Route: 048
  437. FOLIC ACID [Suspect]
     Active Substance: FOLIC ACID
     Route: 058
  438. CETIRIZINE HYDROCHLORIDE [Suspect]
     Active Substance: CETIRIZINE HYDROCHLORIDE
     Indication: Rheumatoid arthritis
     Dosage: 10 MILLIGRAM, 1 EVERY 1 DAYS
     Route: 048
  439. CETIRIZINE HYDROCHLORIDE [Suspect]
     Active Substance: CETIRIZINE HYDROCHLORIDE
     Indication: Product used for unknown indication
     Route: 065
  440. CETIRIZINE HYDROCHLORIDE [Suspect]
     Active Substance: CETIRIZINE HYDROCHLORIDE
     Indication: Off label use
     Route: 048
  441. CETIRIZINE HYDROCHLORIDE [Suspect]
     Active Substance: CETIRIZINE HYDROCHLORIDE
     Route: 048
  442. CETIRIZINE HYDROCHLORIDE [Suspect]
     Active Substance: CETIRIZINE HYDROCHLORIDE
     Route: 065
  443. CETIRIZINE HYDROCHLORIDE [Suspect]
     Active Substance: CETIRIZINE HYDROCHLORIDE
     Route: 065
  444. CETIRIZINE HYDROCHLORIDE [Suspect]
     Active Substance: CETIRIZINE HYDROCHLORIDE
     Route: 048
  445. CETIRIZINE HYDROCHLORIDE [Suspect]
     Active Substance: CETIRIZINE HYDROCHLORIDE
     Dosage: 10 MILLIGRAM, 1 EVERY 1 DAYS
     Route: 048
  446. CETIRIZINE HYDROCHLORIDE [Suspect]
     Active Substance: CETIRIZINE HYDROCHLORIDE
     Route: 065
  447. CETIRIZINE HYDROCHLORIDE [Suspect]
     Active Substance: CETIRIZINE HYDROCHLORIDE
     Route: 065
  448. CETIRIZINE HYDROCHLORIDE [Suspect]
     Active Substance: CETIRIZINE HYDROCHLORIDE
     Route: 048
  449. CETIRIZINE HYDROCHLORIDE [Suspect]
     Active Substance: CETIRIZINE HYDROCHLORIDE
     Route: 065
  450. CETIRIZINE HYDROCHLORIDE [Suspect]
     Active Substance: CETIRIZINE HYDROCHLORIDE
     Dosage: 10 MILLIGRAM, 1 EVERY 1 DAYS
     Route: 048
  451. CETIRIZINE HYDROCHLORIDE [Suspect]
     Active Substance: CETIRIZINE HYDROCHLORIDE
     Route: 065
  452. CETIRIZINE HYDROCHLORIDE [Suspect]
     Active Substance: CETIRIZINE HYDROCHLORIDE
     Route: 065
  453. HYDROCORTISONE BUTYRATE [Suspect]
     Active Substance: HYDROCORTISONE BUTYRATE
     Indication: Product used for unknown indication
     Route: 058
  454. HYDROCORTISONE BUTYRATE [Suspect]
     Active Substance: HYDROCORTISONE BUTYRATE
     Indication: Rheumatoid arthritis
     Route: 065
  455. HYDROCORTISONE BUTYRATE [Suspect]
     Active Substance: HYDROCORTISONE BUTYRATE
     Dosage: 50 MILLIGRAM, 1 EVERY 1 WEEKS
     Route: 058
  456. HYDROXYCHLOROQUINE [Suspect]
     Active Substance: HYDROXYCHLOROQUINE
     Indication: Rheumatoid arthritis
     Route: 065
  457. HYDROXYCHLOROQUINE [Suspect]
     Active Substance: HYDROXYCHLOROQUINE
     Route: 048
  458. HYDROXYCHLOROQUINE [Suspect]
     Active Substance: HYDROXYCHLOROQUINE
     Route: 065
  459. HYDROXYCHLOROQUINE [Suspect]
     Active Substance: HYDROXYCHLOROQUINE
     Dosage: 400 MILLIGRAM, 1 EVERY 1 DAYS
     Route: 048
  460. HYDROXYCHLOROQUINE [Suspect]
     Active Substance: HYDROXYCHLOROQUINE
     Dosage: 400 MILLIGRAM, 1 EVERY 1 DAYS
     Route: 065
  461. HYDROXYCHLOROQUINE [Suspect]
     Active Substance: HYDROXYCHLOROQUINE
     Dosage: 400 MILLIGRAM, 1 EVERY 1 DAYS
     Route: 065
  462. HYDROXYCHLOROQUINE [Suspect]
     Active Substance: HYDROXYCHLOROQUINE
     Route: 048
  463. HYDROXYCHLOROQUINE [Suspect]
     Active Substance: HYDROXYCHLOROQUINE
     Route: 048
  464. HYDROXYCHLOROQUINE [Suspect]
     Active Substance: HYDROXYCHLOROQUINE
     Route: 065
  465. HYDROXYCHLOROQUINE [Suspect]
     Active Substance: HYDROXYCHLOROQUINE
     Route: 048
  466. HYDROXYCHLOROQUINE [Suspect]
     Active Substance: HYDROXYCHLOROQUINE
     Dosage: 400 MILLIGRAM, 1 EVERY 1 DAYS
     Route: 065
  467. HYDROXYCHLOROQUINE [Suspect]
     Active Substance: HYDROXYCHLOROQUINE
     Route: 065
  468. HYDROXYCHLOROQUINE [Suspect]
     Active Substance: HYDROXYCHLOROQUINE
     Dosage: 40 MILLIGRAM, 1 EVERY 1 DAYS
     Route: 065
  469. HYDROXYCHLOROQUINE [Suspect]
     Active Substance: HYDROXYCHLOROQUINE
     Route: 065
  470. HYDROXYCHLOROQUINE [Suspect]
     Active Substance: HYDROXYCHLOROQUINE
     Route: 065
  471. ORENCIA [Suspect]
     Active Substance: ABATACEPT
     Indication: Rheumatoid arthritis
     Route: 058
  472. ORENCIA [Suspect]
     Active Substance: ABATACEPT
     Route: 041
  473. ORENCIA [Suspect]
     Active Substance: ABATACEPT
     Route: 058
  474. ORENCIA [Suspect]
     Active Substance: ABATACEPT
     Route: 065
  475. ORENCIA [Suspect]
     Active Substance: ABATACEPT
     Route: 058
  476. ORENCIA [Suspect]
     Active Substance: ABATACEPT
     Route: 065
  477. ORENCIA [Suspect]
     Active Substance: ABATACEPT
     Route: 042
  478. ORENCIA [Suspect]
     Active Substance: ABATACEPT
     Route: 042
  479. ORENCIA [Suspect]
     Active Substance: ABATACEPT
     Route: 042
  480. ORENCIA [Suspect]
     Active Substance: ABATACEPT
     Route: 042
  481. ORENCIA [Suspect]
     Active Substance: ABATACEPT
     Route: 048
  482. ORENCIA [Suspect]
     Active Substance: ABATACEPT
     Dosage: 1 EVERY 1 DAYS
     Route: 042
  483. ORENCIA [Suspect]
     Active Substance: ABATACEPT
     Dosage: 1 EVERY 1 DAYS
     Route: 042
  484. ORENCIA [Suspect]
     Active Substance: ABATACEPT
     Dosage: 17.875 MILIGRAM, 1 EVERY 1 DAYS
     Route: 058
  485. ORENCIA [Suspect]
     Active Substance: ABATACEPT
     Dosage: 125.0 MILLIGRAM, 1 EVERY 1 WEEKS
     Route: 058
  486. ORENCIA [Suspect]
     Active Substance: ABATACEPT
     Dosage: 18 MILLIGRAM, 1 EVERY 1 DAYS
     Route: 058
  487. ORENCIA [Suspect]
     Active Substance: ABATACEPT
     Dosage: 120 MILLIGRAM, 1 EVERY 1 WEEKS
     Route: 058
  488. ORENCIA [Suspect]
     Active Substance: ABATACEPT
     Route: 065
  489. SULFASALAZINE [Suspect]
     Active Substance: SULFASALAZINE
     Indication: Rheumatoid arthritis
     Dosage: 1 GRAM, 1 EVERY .5 DAYS
     Route: 065
  490. SULFASALAZINE [Suspect]
     Active Substance: SULFASALAZINE
     Route: 048
  491. SULFASALAZINE [Suspect]
     Active Substance: SULFASALAZINE
     Route: 048
  492. SULFASALAZINE [Suspect]
     Active Substance: SULFASALAZINE
     Dosage: 1 GRAM, 1 EVERY .5 DAYS
     Route: 048
  493. SULFASALAZINE [Suspect]
     Active Substance: SULFASALAZINE
     Dosage: 1 GRAM, 1 EVERY 1 DAYS
     Route: 048
  494. ISOPROPYL ALCOHOL [Suspect]
     Active Substance: ISOPROPYL ALCOHOL
     Indication: Product used for unknown indication
     Route: 061
  495. VOLTAREN [Suspect]
     Active Substance: DICLOFENAC SODIUM
     Indication: Product used for unknown indication
     Route: 048
  496. VOLTAREN [Suspect]
     Active Substance: DICLOFENAC SODIUM
     Route: 048
  497. VOLTAREN [Suspect]
     Active Substance: DICLOFENAC SODIUM
     Route: 058
  498. VOLTAREN [Suspect]
     Active Substance: DICLOFENAC SODIUM
     Route: 065
  499. VOLTAREN [Suspect]
     Active Substance: DICLOFENAC SODIUM
     Route: 047
  500. VOLTAREN [Suspect]
     Active Substance: DICLOFENAC SODIUM
     Route: 065
  501. CHOLECALCIFEROL [Suspect]
     Active Substance: CHOLECALCIFEROL
     Indication: Product used for unknown indication
     Route: 065
  502. LORAZEPAM [Concomitant]
     Active Substance: LORAZEPAM
     Indication: Product used for unknown indication
     Route: 065

REACTIONS (135)
  - Abdominal discomfort [Fatal]
  - Alopecia [Fatal]
  - Anti-cyclic citrullinated peptide antibody positive [Fatal]
  - Arthralgia [Fatal]
  - Arthropathy [Fatal]
  - Blister [Fatal]
  - Confusional state [Fatal]
  - Contusion [Fatal]
  - Contraindicated product administered [Fatal]
  - Discomfort [Fatal]
  - Drug intolerance [Fatal]
  - Duodenal ulcer perforation [Fatal]
  - Dyspnoea [Fatal]
  - Fatigue [Fatal]
  - Folliculitis [Fatal]
  - Gastrointestinal disorder [Fatal]
  - Glossodynia [Fatal]
  - Hand deformity [Fatal]
  - Helicobacter infection [Fatal]
  - Hepatic enzyme increased [Fatal]
  - Hypersensitivity [Fatal]
  - Ill-defined disorder [Fatal]
  - Impaired healing [Fatal]
  - Infection [Fatal]
  - Infusion related reaction [Fatal]
  - Irritable bowel syndrome [Fatal]
  - Joint swelling [Fatal]
  - Lower respiratory tract infection [Fatal]
  - Muscle injury [Fatal]
  - Nasopharyngitis [Fatal]
  - Pain [Fatal]
  - Pemphigus [Fatal]
  - Pericarditis [Fatal]
  - Peripheral swelling [Fatal]
  - Pruritus [Fatal]
  - Pyrexia [Fatal]
  - Rash [Fatal]
  - Rheumatoid arthritis [Fatal]
  - Sinusitis [Fatal]
  - Sleep disorder due to general medical condition, insomnia type [Fatal]
  - Stomatitis [Fatal]
  - Swelling [Fatal]
  - Synovitis [Fatal]
  - Systemic lupus erythematosus [Fatal]
  - Therapeutic product effect decreased [Fatal]
  - Weight increased [Fatal]
  - Wound [Fatal]
  - Pregnancy [Fatal]
  - Maternal exposure during pregnancy [Fatal]
  - Maternal exposure timing unspecified [Fatal]
  - Autoimmune disorder [Fatal]
  - Chest pain [Fatal]
  - Condition aggravated [Fatal]
  - Deep vein thrombosis postoperative [Fatal]
  - Drug hypersensitivity [Fatal]
  - Gait inability [Fatal]
  - Lower limb fracture [Fatal]
  - Musculoskeletal stiffness [Fatal]
  - Road traffic accident [Fatal]
  - Therapy non-responder [Fatal]
  - Treatment failure [Fatal]
  - Urticaria [Fatal]
  - Arthritis [Fatal]
  - Respiratory tract infection [Fatal]
  - Sleep disorder [Fatal]
  - Insomnia [Fatal]
  - Abdominal pain [Fatal]
  - Abdominal pain upper [Fatal]
  - Adverse drug reaction [Fatal]
  - Anxiety [Fatal]
  - Asthenia [Fatal]
  - Asthma [Fatal]
  - Autoimmune disorder [Fatal]
  - Blood cholesterol increased [Fatal]
  - Bursitis [Fatal]
  - C-reactive protein abnormal [Fatal]
  - Contraindicated product administered [Fatal]
  - Decreased appetite [Fatal]
  - Deep vein thrombosis postoperative [Fatal]
  - Diarrhoea [Fatal]
  - Dizziness [Fatal]
  - Dry mouth [Fatal]
  - Exposure during pregnancy [Fatal]
  - Facet joint syndrome [Fatal]
  - Fibromyalgia [Fatal]
  - General physical health deterioration [Fatal]
  - Headache [Fatal]
  - Hip arthroplasty [Fatal]
  - Hypertension [Fatal]
  - Hypoaesthesia [Fatal]
  - Ill-defined disorder [Fatal]
  - Inflammation [Fatal]
  - Injury [Fatal]
  - Intentional product use issue [Fatal]
  - Irritable bowel syndrome [Fatal]
  - Joint range of motion decreased [Fatal]
  - Knee arthroplasty [Fatal]
  - Lip dry [Fatal]
  - Liver disorder [Fatal]
  - Lung disorder [Fatal]
  - Malaise [Fatal]
  - Medication error [Fatal]
  - Mobility decreased [Fatal]
  - Muscle spasms [Fatal]
  - Musculoskeletal pain [Fatal]
  - Night sweats [Fatal]
  - Obesity [Fatal]
  - Oedema [Fatal]
  - Oedema peripheral [Fatal]
  - Off label use [Fatal]
  - Osteoarthritis [Fatal]
  - Paraesthesia [Fatal]
  - Peripheral venous disease [Fatal]
  - Prescribed overdose [Fatal]
  - Product use in unapproved indication [Fatal]
  - Psoriatic arthropathy [Fatal]
  - Rheumatic fever [Fatal]
  - Rheumatoid factor positive [Fatal]
  - Swollen joint count increased [Fatal]
  - Type 2 diabetes mellitus [Fatal]
  - Vomiting [Fatal]
  - Wheezing [Fatal]
  - Product use issue [Fatal]
  - C-reactive protein increased [Fatal]
  - Hypercholesterolaemia [Fatal]
  - Facet joint syndrome [Fatal]
  - C-reactive protein [Fatal]
  - Alopecia [Fatal]
  - Drug ineffective [Fatal]
  - Glossodynia [Fatal]
  - Liver injury [Fatal]
  - Sciatica [Fatal]
  - Infusion related reaction [Fatal]
  - Tender joint count [Fatal]
  - Swollen joint count [Fatal]
